FAERS Safety Report 10692666 (Version 1)
Quarter: 2015Q1

REPORT INFORMATION
  Report Type: Spontaneous
  Country: US (occurrence: None)
  Receive Date: 20150105
  Receipt Date: 20150105
  Transmission Date: 20150720
  Serious: Yes (Hospitalization)
  Sender: FDA-Public Use
  Company Number: None

PATIENT
  Age: 64 Year
  Sex: Male
  Weight: 92.3 kg

DRUGS (1)
  1. PIOGLITAZONE [Suspect]
     Active Substance: PIOGLITAZONE
     Indication: DIABETES MELLITUS
     Route: 048
     Dates: start: 20140613, end: 20141111

REACTIONS (5)
  - Nephrotic syndrome [None]
  - Amyotrophy [None]
  - Ataxia [None]
  - Hypertensive crisis [None]
  - Diabetic neuropathy [None]

NARRATIVE: CASE EVENT DATE: 20141104
